FAERS Safety Report 15246182 (Version 1)
Quarter: 2018Q3

REPORT INFORMATION
  Report Type: Spontaneous
  Country: US (occurrence: US)
  Receive Date: 20180713
  Receipt Date: 20180713
  Transmission Date: 20181010
  Serious: Yes (Other)
  Sender: FDA-Public Use
  Company Number: None

PATIENT
  Age: 63 Year
  Sex: Female
  Weight: 63.5 kg

DRUGS (2)
  1. ALPRAZOLAM 0.5MG [Suspect]
     Active Substance: ALPRAZOLAM
     Route: 048
  2. ALPRAZOLAM 0.5 MG [Suspect]
     Active Substance: ALPRAZOLAM
     Route: 048

REACTIONS (4)
  - Hypertension [None]
  - Aggression [None]
  - Headache [None]
  - Panic attack [None]

NARRATIVE: CASE EVENT DATE: 20180625
